FAERS Safety Report 23710594 (Version 1)
Quarter: 2024Q2

REPORT INFORMATION
  Report Type: Spontaneous
  Country: GB (occurrence: GB)
  Receive Date: 20240405
  Receipt Date: 20240405
  Transmission Date: 20240716
  Serious: Yes (Other)
  Sender: FDA-Public Use
  Company Number: GB-MHRA-MED-202403191104323680-ZYPNQ

PATIENT
  Age: 76 Year
  Sex: Female
  Weight: 59 kg

DRUGS (4)
  1. ALENDRONIC ACID [Suspect]
     Active Substance: ALENDRONIC ACID
     Indication: Adverse drug reaction
     Dosage: 70 MILLIGRAM
     Route: 065
     Dates: start: 20240206, end: 20240313
  2. ALENDRONIC ACID [Suspect]
     Active Substance: ALENDRONIC ACID
     Indication: Adverse drug reaction
     Dosage: 70 MILLIGRAM, EVERY WEEK
     Route: 065
     Dates: start: 20231201, end: 20240313
  3. ATORVASTATIN [Concomitant]
     Active Substance: ATORVASTATIN
     Indication: Adverse drug reaction
     Dosage: UNK
     Route: 065
  4. CALCI D [Concomitant]
     Indication: Product used for unknown indication
     Dosage: UNK
     Route: 065

REACTIONS (2)
  - Arthritis [Recovered/Resolved]
  - Monoplegia [Recovered/Resolved]

NARRATIVE: CASE EVENT DATE: 20240308
